FAERS Safety Report 15930341 (Version 1)
Quarter: 2019Q1

REPORT INFORMATION
  Report Type: Spontaneous
  Country: US (occurrence: US)
  Receive Date: 20190115
  Receipt Date: 20190115
  Transmission Date: 20190417
  Serious: No
  Sender: FDA-Public Use
  Company Number: None

PATIENT
  Age: 78 Year
  Sex: Female
  Weight: 60.78 kg

DRUGS (2)
  1. CARBOPLATIN. [Suspect]
     Active Substance: CARBOPLATIN
     Dates: end: 20181226
  2. TAXOL [Suspect]
     Active Substance: PACLITAXEL
     Dates: end: 20190102

REACTIONS (3)
  - Soft tissue swelling [None]
  - Osteoarthritis [None]
  - Arthralgia [None]

NARRATIVE: CASE EVENT DATE: 20190106
